FAERS Safety Report 5160209-9 (Version None)
Quarter: 2006Q4

REPORT INFORMATION
  Report Type: 
  Country: None (occurrence: None)
  Receive Date: 20061120
  Receipt Date: 20061019
  Transmission Date: 20070319
  Serious: Yes (Death)
  Sender: FDA-Public Use
  Company Number: A03200606372

PATIENT
  Age: 71 Year
  Sex: Male

DRUGS (17)
  1. PLAVIX [Suspect]
     Indication: STENT PLACEMENT
     Dosage: 75 MG QD; ORAL
     Route: 048
  2. ACETYLSALICYLIC ACID SRT [Concomitant]
  3. WARFARIN SODIUM [Concomitant]
  4. FUROSEMIDE [Concomitant]
  5. RAMIPRIL [Concomitant]
  6. POTASSIUM ACETATE [Concomitant]
  7. DIGOXIN [Concomitant]
  8. ISOSORBIDE MONONITRATE [Concomitant]
  9. METOPROLOL SUCCINATE [Concomitant]
  10. METOLAZONE [Concomitant]
  11. GLYCERYL TRINITRATE [Concomitant]
  12. FOLIC ACID [Concomitant]
  13. FLAXSEED OIL [Concomitant]
  14. RANOLAZINE [Concomitant]
  15. VITAMIN B6 [Concomitant]
  16. VITAMIN B-12 [Concomitant]
  17. INSULIN [Concomitant]

REACTIONS (1)
  - DEATH [None]
